FAERS Safety Report 23773927 (Version 13)
Quarter: 2024Q4

REPORT INFORMATION
  Report Type: Report from Study
  Country: GB (occurrence: GB)
  Receive Date: 20240423
  Receipt Date: 20241219
  Transmission Date: 20250115
  Serious: Yes (Other)
  Sender: TAKEDA
  Company Number: GB-TAKEDA-2021TUS055716

PATIENT
  Age: 9 Year
  Sex: Male

DRUGS (7)
  1. IDURSULFASE [Suspect]
     Active Substance: IDURSULFASE
     Indication: Mucopolysaccharidosis II
     Dosage: 12 MILLIGRAM, Q2WEEKS
     Dates: start: 20210826
  2. IDURSULFASE [Suspect]
     Active Substance: IDURSULFASE
     Dosage: 18 MILLIGRAM, Q2WEEKS
  3. IDURSULFASE [Suspect]
     Active Substance: IDURSULFASE
     Dosage: 6 MILLIGRAM, 1/WEEK
     Dates: start: 20230330
  4. IDURSULFASE [Suspect]
     Active Substance: IDURSULFASE
     Dosage: 6 MILLIGRAM, 1/WEEK
  5. IDURSULFASE [Suspect]
     Active Substance: IDURSULFASE
     Dosage: 1 DOSAGE FORM
  6. IDURSULFASE [Suspect]
     Active Substance: IDURSULFASE
     Dosage: 18 MILLIGRAM, 1/WEEK
  7. IDURSULFASE [Suspect]
     Active Substance: IDURSULFASE
     Dosage: 42 MILLIGRAM, Q2WEEKS

REACTIONS (32)
  - Syncope [Recovered/Resolved]
  - Incorrect dose administered [Recovered/Resolved]
  - Rhinorrhoea [Recovered/Resolved]
  - Body temperature decreased [Recovered/Resolved]
  - Emotional distress [Unknown]
  - Sinusitis [Unknown]
  - Learning disorder [Unknown]
  - Body temperature increased [Unknown]
  - Nasopharyngitis [Recovered/Resolved]
  - Head injury [Unknown]
  - Dyskinesia [Unknown]
  - Medical device site haemorrhage [Unknown]
  - Device intolerance [Unknown]
  - Peripheral coldness [Unknown]
  - Patient uncooperative [Unknown]
  - Blood pressure abnormal [Unknown]
  - Depressed mood [Unknown]
  - Infrequent bowel movements [Unknown]
  - Malaise [Unknown]
  - Product availability issue [Unknown]
  - Product preparation issue [Unknown]
  - Product dose omission issue [Unknown]
  - Inappropriate schedule of product administration [Unknown]
  - Infection [Unknown]
  - Chills [Recovered/Resolved]
  - Fatigue [Unknown]
  - Cough [Unknown]
  - Vomiting [Recovered/Resolved]
  - Rash [Recovered/Resolved]
  - Weight increased [Unknown]
  - Device power source issue [Unknown]
  - Diarrhoea [Unknown]

NARRATIVE: CASE EVENT DATE: 20220525
